FAERS Safety Report 9966065 (Version 1)
Quarter: 2014Q1

REPORT INFORMATION
  Report Type: Report from Study
  Country: US (occurrence: US)
  Receive Date: 20140305
  Receipt Date: 20140305
  Transmission Date: 20141002
  Serious: No
  Sender: FDA-Public Use
  Company Number: US-ABBVIE-13P-163-1127294-00

PATIENT
  Sex: Female
  Weight: 90.8 kg

DRUGS (6)
  1. HUMIRA [Suspect]
     Indication: PSORIASIS
     Route: 058
     Dates: start: 201206, end: 201212
  2. UNKNOWN [Concomitant]
     Indication: DIABETES MELLITUS
  3. UNKNOWN [Concomitant]
     Indication: HYPERTENSION
  4. UNKNOWN [Concomitant]
     Indication: BLOOD CHOLESTEROL INCREASED
  5. UNKNOWN [Concomitant]
     Indication: HYPOTHYROIDISM
  6. UNKNOWN [Concomitant]
     Indication: PRURITUS

REACTIONS (1)
  - Psoriasis [Recovered/Resolved]
